FAERS Safety Report 11025706 (Version 1)
Quarter: 2015Q2

REPORT INFORMATION
  Report Type: Spontaneous
  Country: US (occurrence: None)
  Receive Date: 20150413
  Receipt Date: 20150413
  Transmission Date: 20150821
  Serious: Yes (Other)
  Sender: FDA-Public Use
  Company Number: None

PATIENT
  Age: 60 Year
  Sex: Male
  Weight: 68.04 kg

DRUGS (5)
  1. METFORMIN [Concomitant]
     Active Substance: METFORMIN HYDROCHLORIDE
  2. PRIMIDON [Concomitant]
     Active Substance: PRIMIDONE
  3. PRAVASTATIN NA 20 MG TAB V.A. DUBLIN (PROVIDER) [Suspect]
     Active Substance: PRAVASTATIN SODIUM
     Indication: BLOOD CHOLESTEROL
     Dosage: 1 NIGHTLY
  4. LOSARTAN [Concomitant]
     Active Substance: LOSARTAN
  5. PRAVASTATIN [Concomitant]
     Active Substance: PRAVASTATIN\PRAVASTATIN SODIUM

REACTIONS (3)
  - Condition aggravated [None]
  - Pigmentation disorder [None]
  - Scab [None]

NARRATIVE: CASE EVENT DATE: 2002
